FAERS Safety Report 24413558 (Version 4)
Quarter: 2024Q4

REPORT INFORMATION
  Report Type: Spontaneous
  Country: US (occurrence: US)
  Receive Date: 20241008
  Receipt Date: 20241024
  Transmission Date: 20250115
  Serious: Yes (Other)
  Sender: NOVARTIS
  Company Number: US-002147023-NVSC2024US195627

PATIENT
  Age: 48 Year
  Sex: Male

DRUGS (7)
  1. OCTREOTIDE [Interacting]
     Active Substance: OCTREOTIDE
     Indication: Alcohol withdrawal syndrome
     Dosage: UNK
     Route: 065
  2. OCTREOTIDE [Interacting]
     Active Substance: OCTREOTIDE
     Indication: Blood loss anaemia
  3. OCTREOTIDE [Interacting]
     Active Substance: OCTREOTIDE
  4. DEXMEDETOMIDINE [Interacting]
     Active Substance: DEXMEDETOMIDINE
     Indication: Alcohol withdrawal syndrome
     Dosage: UNK
     Route: 065
  5. DEXMEDETOMIDINE [Interacting]
     Active Substance: DEXMEDETOMIDINE
     Indication: Sedation
  6. EPINEPHRINE [Concomitant]
     Active Substance: EPINEPHRINE
     Indication: Upper gastrointestinal haemorrhage
     Dosage: UNK
     Route: 065
  7. PROPOFOL [Concomitant]
     Active Substance: PROPOFOL
     Indication: Sedation
     Dosage: UNK
     Route: 065

REACTIONS (7)
  - Seizure like phenomena [Unknown]
  - Sinus arrest [Recovered/Resolved]
  - Syncope [Unknown]
  - Unresponsive to stimuli [Unknown]
  - Bradycardia [Unknown]
  - Drug interaction [Unknown]
  - Product use in unapproved indication [Unknown]
